FAERS Safety Report 14974948 (Version 1)
Quarter: 2018Q2

REPORT INFORMATION
  Report Type: Report from Study
  Country: US (occurrence: US)
  Receive Date: 20180605
  Receipt Date: 20180605
  Transmission Date: 20180711
  Serious: Yes (Death, Other)
  Sender: FDA-Public Use
  Company Number: US-GILEAD-2018-0341866

PATIENT
  Age: 84 Year
  Sex: Female

DRUGS (1)
  1. IDELALISIB [Suspect]
     Active Substance: IDELALISIB
     Indication: LEUKAEMIA
     Dosage: 200 MG, UNK
     Route: 048
     Dates: start: 20180105, end: 20180529

REACTIONS (2)
  - Disease progression [Unknown]
  - Death [Fatal]
